FAERS Safety Report 17656012 (Version 6)
Quarter: 2020Q4

REPORT INFORMATION
  Report Type: Spontaneous
  Country: US (occurrence: US)
  Receive Date: 20200410
  Receipt Date: 20201202
  Transmission Date: 20210113
  Serious: Yes (Other)
  Sender: FDA-Public Use
  Company Number: US-GLAXOSMITHKLINE-US2020AMR059028

PATIENT
  Age: 51 Year
  Sex: Female

DRUGS (3)
  1. ZEJULA [Suspect]
     Active Substance: NIRAPARIB
     Dosage: 300 MG, QD
     Route: 048
     Dates: start: 20200205
  2. ZEJULA [Suspect]
     Active Substance: NIRAPARIB
     Dosage: 300 MG, QD
  3. ZEJULA [Suspect]
     Active Substance: NIRAPARIB
     Indication: FALLOPIAN TUBE CANCER
     Dosage: 300 MG, QD
     Route: 048
     Dates: start: 20200203

REACTIONS (23)
  - Heart rate irregular [Unknown]
  - Epistaxis [Not Recovered/Not Resolved]
  - Fatigue [Not Recovered/Not Resolved]
  - Social problem [Unknown]
  - Feeling hot [Unknown]
  - Photosensitivity reaction [Unknown]
  - Hot flush [Unknown]
  - Asthenia [Unknown]
  - Blood magnesium decreased [Unknown]
  - Palpitations [Not Recovered/Not Resolved]
  - Chest pain [Unknown]
  - Malignant neoplasm progression [Recovering/Resolving]
  - Neuropathy peripheral [Unknown]
  - Hypertension [Not Recovered/Not Resolved]
  - Illness [Recovered/Resolved]
  - Pharyngitis streptococcal [Unknown]
  - Skin burning sensation [Unknown]
  - Muscle spasms [Unknown]
  - Nasal dryness [Not Recovered/Not Resolved]
  - Dyspnoea [Not Recovered/Not Resolved]
  - Constipation [Recovering/Resolving]
  - Nausea [Recovering/Resolving]
  - Nasal discomfort [Not Recovered/Not Resolved]

NARRATIVE: CASE EVENT DATE: 202008
